FAERS Safety Report 7150107 (Version 2)
Quarter: 2017Q2

REPORT INFORMATION
  Report Type: Spontaneous
  Country: JP (occurrence: JP)
  Receive Date: 20091015
  Receipt Date: 20170628
  Transmission Date: 20170830
  Serious: Yes (Other)
  Sender: FDA-Public Use
  Company Number: JP-ROCHE-662394

PATIENT
  Age: 80 Year
  Sex: Female

DRUGS (2)
  1. ROCEPHIN [Suspect]
     Active Substance: CEFTRIAXONE SODIUM
     Indication: CELLULITIS
     Route: 042
  2. ROCEPHIN [Suspect]
     Active Substance: CEFTRIAXONE SODIUM
     Dosage: DOSE DECREASED
     Route: 042

REACTIONS (3)
  - Choreoathetosis [Recovered/Resolved]
  - Altered state of consciousness [Recovered/Resolved]
  - Delirium [Recovered/Resolved]
